FAERS Safety Report 7464942-5 (Version None)
Quarter: 2011Q2

REPORT INFORMATION
  Report Type: 
  Country: None (occurrence: None)
  Receive Date: 20110509
  Receipt Date: 20110427
  Transmission Date: 20111010
  Serious: No
  Sender: FDA-Public Use
  Company Number: US-JNJFOC-20110500114

PATIENT
  Sex: Male

DRUGS (1)
  1. FENTANYL [Suspect]
     Indication: PAIN
     Route: 062

REACTIONS (3)
  - APPLICATION SITE BURN [None]
  - APPLICATION SITE VESICLES [None]
  - DRUG DOSE OMISSION [None]
